FAERS Safety Report 5580645-6 (Version None)
Quarter: 2008Q1

REPORT INFORMATION
  Report Type: 
  Country: None (occurrence: None)
  Receive Date: 20080103
  Receipt Date: 20071225
  Transmission Date: 20080703
  Serious: Yes (Other)
  Sender: FDA-Public Use
  Company Number: TW-ASTRAZENECA-2007AP08084

PATIENT
  Age: 50 Year
  Sex: Male

DRUGS (2)
  1. CRESTOR [Suspect]
     Indication: HYPERLIPIDAEMIA
     Route: 048
     Dates: start: 20071001
  2. ANTIHYPERTENSIVE [Concomitant]

REACTIONS (1)
  - THROMBOCYTOPENIC PURPURA [None]
